FAERS Safety Report 21377013 (Version 1)
Quarter: 2022Q3

REPORT INFORMATION
  Report Type: Spontaneous
  Country: US (occurrence: None)
  Receive Date: 20220925
  Receipt Date: 20220925
  Transmission Date: 20221027
  Serious: Yes (unspecified)
  Sender: FDA-Public Use
  Company Number: None

PATIENT
  Age: 28 Year
  Sex: Female
  Weight: 71.21 kg

DRUGS (7)
  1. PARAGARD T 380A [Suspect]
     Active Substance: COPPER
  2. ADDERALL XR [Concomitant]
     Active Substance: AMPHETAMINE ASPARTATE\AMPHETAMINE SULFATE\DEXTROAMPHETAMINE SACCHARATE\DEXTROAMPHETAMINE SULFATE
  3. ZINC [Concomitant]
     Active Substance: ZINC
  4. C [Concomitant]
  5. VITAMINS [Concomitant]
     Active Substance: VITAMINS
  6. VITAMIN D3 [Concomitant]
     Active Substance: CHOLECALCIFEROL
  7. MELATONIN [Concomitant]
     Active Substance: MELATONIN

REACTIONS (26)
  - Oligomenorrhoea [None]
  - Immobile [None]
  - Menstruation irregular [None]
  - Acne cystic [None]
  - Mental impairment [None]
  - Memory impairment [None]
  - Memory impairment [None]
  - Aphasia [None]
  - Hair texture abnormal [None]
  - Hair colour changes [None]
  - Abdominal distension [None]
  - Heart rate increased [None]
  - Skin texture abnormal [None]
  - Skin wrinkling [None]
  - Collagen disorder [None]
  - Skin atrophy [None]
  - Panic attack [None]
  - Device colour issue [None]
  - Vision blurred [None]
  - Alopecia [None]
  - Hand dermatitis [None]
  - Tongue geographic [None]
  - Feeling abnormal [None]
  - Heavy menstrual bleeding [None]
  - Pain [None]
  - Weight increased [None]

NARRATIVE: CASE EVENT DATE: 20220729
